FAERS Safety Report 5662879-5 (Version None)
Quarter: 2008Q1

REPORT INFORMATION
  Report Type: 
  Country: None (occurrence: None)
  Receive Date: 20080311
  Receipt Date: 20080311
  Transmission Date: 20080703
  Serious: No
  Sender: FDA-Public Use
  Company Number: None

PATIENT
  Age: 50 Year
  Sex: Female
  Weight: 75.2971 kg

DRUGS (2)
  1. PHENTOIN EXT.CAPS. 100 MG MYLAN [Suspect]
     Indication: CONVULSION
     Dosage: 100MG 3/ONCE A DAY PO
     Route: 048
     Dates: start: 20030101, end: 20080101
  2. PHENTOIN EXT.CAPS. 100 MG MYLAN [Suspect]
     Indication: CONVULSION
     Dosage: 100MG 3/ONCE A DAY PO
     Route: 048
     Dates: start: 20030101, end: 20080101

REACTIONS (3)
  - DYSARTHRIA [None]
  - PHARMACEUTICAL PRODUCT COMPLAINT [None]
  - PRURITUS [None]
